FAERS Safety Report 10888343 (Version 2)
Quarter: 2015Q2

REPORT INFORMATION
  Report Type: Spontaneous
  Country: FR (occurrence: FR)
  Receive Date: 20150305
  Receipt Date: 20150403
  Transmission Date: 20150821
  Serious: Yes (Other)
  Sender: FDA-Public Use
  Company Number: FR-ABBVIE-15K-056-1354651-00

PATIENT
  Age: 19 Year
  Sex: Male
  Weight: 60 kg

DRUGS (3)
  1. HUMIRA [Suspect]
     Active Substance: ADALIMUMAB
     Route: 065
  2. HUMIRA [Suspect]
     Active Substance: ADALIMUMAB
     Indication: PRODUCT USED FOR UNKNOWN INDICATION
     Dosage: LOAD DOSE
     Route: 065
  3. HUMIRA [Suspect]
     Active Substance: ADALIMUMAB
     Dosage: LOAD DOASE
     Route: 065

REACTIONS (1)
  - Drug-induced liver injury [Recovered/Resolved]

NARRATIVE: CASE EVENT DATE: 20150221
